FAERS Safety Report 21064212 (Version 1)
Quarter: 2022Q3

REPORT INFORMATION
  Report Type: Spontaneous
  Country: US (occurrence: None)
  Receive Date: 20220708
  Receipt Date: 20220708
  Transmission Date: 20221027
  Serious: Yes (Other)
  Sender: FDA-Public Use
  Company Number: None

PATIENT
  Age: 65 Year
  Sex: Female
  Weight: 72.08 kg

DRUGS (24)
  1. CAPECITABINE [Suspect]
     Active Substance: CAPECITABINE
     Indication: Chemotherapy
     Dosage: FREQUENCY : TWICE A DAY;?
     Route: 048
     Dates: start: 20210914
  2. ALLOPURINOL [Concomitant]
     Active Substance: ALLOPURINOL
  3. ASCORBIC ACID [Concomitant]
     Active Substance: ASCORBIC ACID
  4. ASPIRIN [Concomitant]
     Active Substance: ASPIRIN
  5. CARVEDILOL [Concomitant]
     Active Substance: CARVEDILOL
  6. CEPHALEXIN [Concomitant]
     Active Substance: CEPHALEXIN
  7. CRANBERRY [Concomitant]
     Active Substance: CRANBERRY
  8. ENTRESTO [Concomitant]
     Active Substance: SACUBITRIL\VALSARTAN
  9. LOPERAMIDE [Concomitant]
     Active Substance: LOPERAMIDE
  10. MELATONIN [Concomitant]
     Active Substance: MELATONIN
  11. METFORMIN [Concomitant]
     Active Substance: METFORMIN HYDROCHLORIDE
  12. VITAMINS [Concomitant]
     Active Substance: VITAMINS
  13. MYRBETRIQ [Concomitant]
     Active Substance: MIRABEGRON
  14. NITROFURANTOIN [Concomitant]
     Active Substance: NITROFURANTOIN
  15. ONDANSETRON [Concomitant]
     Active Substance: ONDANSETRON
  16. PRAVASTATIN [Concomitant]
     Active Substance: PRAVASTATIN
  17. PREDNISONE [Concomitant]
     Active Substance: PREDNISONE
  18. TRAMADOL [Concomitant]
     Active Substance: TRAMADOL
  19. TRIACINOLONE TOPICAL [Concomitant]
  20. TUKYSA [Concomitant]
     Active Substance: TUCATINIB
  21. HERBALS\TURMERIC [Concomitant]
     Active Substance: HERBALS\TURMERIC
  22. VITAMIN B COMPLEX [Concomitant]
     Active Substance: CYANOCOBALAMIN\DEXPANTHENOL\NIACINAMIDE\PYRIDOXINE HYDROCHLORIDE\RIBOFLAVIN 5^-PHOSPHATE SODIUM\THIA
  23. VITAMIN D3 [Concomitant]
     Active Substance: CHOLECALCIFEROL
  24. ZINC [Concomitant]
     Active Substance: ZINC

REACTIONS (1)
  - COVID-19 [None]

NARRATIVE: CASE EVENT DATE: 20220630
